FAERS Safety Report 8774347 (Version 1)
Quarter: 2012Q4

REPORT INFORMATION
  Report Type: 
  Country: JP (occurrence: JP)
  Receive Date: 20120907
  Receipt Date: 20120907
  Transmission Date: 20130627
  Serious: Yes (Death)
  Sender: FDA-Public Use
  Company Number: JP-BAYER-2012-081498

PATIENT
  Age: 80 Year
  Sex: Male
  Weight: 50 kg

DRUGS (6)
  1. NEXAVAR [Suspect]
     Indication: HEPATIC NEOPLASM MALIGNANT
     Dosage: 200 mg, BID
     Route: 048
     Dates: start: 20120724, end: 20120731
  2. RINDERON [Concomitant]
     Indication: HEPATITIS
     Dosage: Daily dose 3 mg
     Route: 048
     Dates: start: 20120718, end: 20120731
  3. PARIET [Concomitant]
     Indication: GASTROOESOPHAGEAL REFLUX DISEASE
     Dosage: Daily dose 10 mg
     Route: 048
     Dates: start: 20120718, end: 20120731
  4. MAGMITT [Concomitant]
     Indication: CONSTIPATION
     Dosage: Daily dose 330 mg
     Route: 048
     Dates: start: 20120718, end: 20120731
  5. MIRIPLATIN [Concomitant]
     Indication: THERAPEUTIC EMBOLISATION
     Dosage: Daily dose 60 mg
     Route: 013
     Dates: start: 20120613, end: 20120613
  6. LIPIODOL ULTRA-FLUIDE [Concomitant]
     Indication: THERAPEUTIC EMBOLISATION
     Dosage: Daily dose 3 ml
     Dates: start: 20120613, end: 20120613

REACTIONS (2)
  - Subarachnoid haemorrhage [Fatal]
  - Jaundice cholestatic [Fatal]
